FAERS Safety Report 23865076 (Version 1)
Quarter: 2024Q2

REPORT INFORMATION
  Report Type: Spontaneous
  Country: CN (occurrence: CN)
  Receive Date: 20240516
  Receipt Date: 20240516
  Transmission Date: 20240716
  Serious: Yes (Other)
  Sender: FDA-Public Use
  Company Number: CN-BEIGENE-BGN-2024-007120

PATIENT

DRUGS (4)
  1. BRUKINSA [Suspect]
     Active Substance: ZANUBRUTINIB
     Indication: Diffuse large B-cell lymphoma stage II
     Dosage: 160 MILLIGRAM, BID
     Route: 048
     Dates: start: 20240319
  2. CYTARABINE [Suspect]
     Active Substance: CYTARABINE
     Indication: Diffuse large B-cell lymphoma stage II
     Dosage: 500 MILLIGRAM, QD
     Route: 041
     Dates: start: 20240321
  3. RITUXIMAB [Suspect]
     Active Substance: RITUXIMAB
     Indication: Diffuse large B-cell lymphoma stage II
     Dosage: 600 MILLIGRAM, QD
     Route: 041
     Dates: start: 20240319
  4. BENDAMUSTINE HYDROCHLORIDE [Suspect]
     Active Substance: BENDAMUSTINE HYDROCHLORIDE
     Indication: Diffuse large B-cell lymphoma
     Dosage: 100 MILLIGRAM
     Route: 041
     Dates: start: 20240321

REACTIONS (2)
  - Myelosuppression [Recovering/Resolving]
  - Off label use [Unknown]

NARRATIVE: CASE EVENT DATE: 20240329
